FAERS Safety Report 9877062 (Version 1)
Quarter: 2014Q1

REPORT INFORMATION
  Report Type: Spontaneous
  Country: CR (occurrence: CR)
  Receive Date: 20140206
  Receipt Date: 20140206
  Transmission Date: 20141002
  Serious: Yes (Hospitalization)
  Sender: FDA-Public Use
  Company Number: CR-AMGEN-CRISP2014008120

PATIENT
  Age: 59 Year
  Sex: Female
  Weight: 73 kg

DRUGS (4)
  1. ENBREL [Suspect]
     Indication: PRODUCT USED FOR UNKNOWN INDICATION
     Dosage: 50 MG, WEEKLY
     Route: 030
     Dates: start: 20130115
  2. PROTON                             /00661201/ [Concomitant]
     Dosage: 20 MG, UNK
     Dates: start: 20121101
  3. AMLODIPINE BESILATE [Concomitant]
     Dosage: UNK
     Dates: start: 20100203
  4. ARAVA [Concomitant]
     Dosage: UNK
     Dates: start: 20110103

REACTIONS (3)
  - Cerebrovascular accident [Unknown]
  - Blood pressure increased [Unknown]
  - Off label use [Unknown]
